FAERS Safety Report 13261763 (Version 4)
Quarter: 2017Q2

REPORT INFORMATION
  Report Type: Spontaneous
  Country: US (occurrence: US)
  Receive Date: 20170222
  Receipt Date: 20170505
  Transmission Date: 20170830
  Serious: Yes (Hospitalization)
  Sender: FDA-Public Use
  Company Number: US-TAIHO ONCOLOGY INC-EU-2017-00300

PATIENT
  Age: 60 Year
  Sex: Female

DRUGS (10)
  1. SENNA ALEXANDRINA [Concomitant]
     Active Substance: SENNA LEAF
     Dosage: NI
  2. FENTANYL. [Concomitant]
     Active Substance: FENTANYL
     Dosage: NI
  3. MORPHINE SULFATE. [Concomitant]
     Active Substance: MORPHINE SULFATE
     Dosage: NI
  4. TEMAZEPAM. [Concomitant]
     Active Substance: TEMAZEPAM
     Dosage: NI
  5. HYDROMORPHONE [Concomitant]
     Active Substance: HYDROMORPHONE
     Dosage: NI
  6. GABAPENTIN. [Concomitant]
     Active Substance: GABAPENTIN
     Dosage: NI
  7. CEFALEXIN [Concomitant]
     Active Substance: CEPHALEXIN
     Dosage: NI
  8. LONSURF [Suspect]
     Active Substance: TIPIRACIL HYDROCHLORIDE\TRIFLURIDINE
     Indication: APPENDIX CANCER
     Route: 048
     Dates: start: 20170204, end: 2017
  9. FAMCICLOVIR. [Concomitant]
     Active Substance: FAMCICLOVIR
     Dosage: NI
  10. SULFAMETHOXAZOLE/TRIMETHOPRIM [Concomitant]
     Dosage: NI

REACTIONS (4)
  - Toxicity to various agents [Unknown]
  - Blood urine present [Unknown]
  - Somnolence [Recovering/Resolving]
  - Vomiting [Recovering/Resolving]

NARRATIVE: CASE EVENT DATE: 2017
